FAERS Safety Report 8087431-6 (Version None)
Quarter: 2012Q1

REPORT INFORMATION
  Report Type: 
  Country: None (occurrence: None)
  Receive Date: 20120128
  Receipt Date: 20110516
  Transmission Date: 20120608
  Serious: No
  Sender: FDA-Public Use
  Company Number: US-ABBOTT-11P-163-0726200-00

PATIENT
  Sex: Male

DRUGS (5)
  1. METFFORMIN HYDROCHLORIDE [Concomitant]
     Indication: HYPERGLYCAEMIA
  2. UNKNOWN TOPICAL [Concomitant]
     Indication: PSORIASIS
  3. LISINOPRIL [Concomitant]
     Indication: HYPERTENSION
  4. ADVICOR [Concomitant]
     Indication: HYPERLIPIDAEMIA
  5. HUMIRA [Suspect]
     Indication: PSORIASIS
     Dates: start: 20110401

REACTIONS (1)
  - HEPATITIS C [None]
